FAERS Safety Report 9112098 (Version 3)
Quarter: 2014Q4

REPORT INFORMATION
  Report Type: Spontaneous
  Country: US (occurrence: US)
  Receive Date: 20130219
  Receipt Date: 20141205
  Transmission Date: 20150529
  Serious: No
  Sender: FDA-Public Use
  Company Number: US-BRISTOL-MYERS SQUIBB COMPANY-17012444

PATIENT
  Age: 48 Year
  Sex: Female

DRUGS (4)
  1. ORENCIA [Suspect]
     Active Substance: ABATACEPT
     Indication: RHEUMATOID ARTHRITIS
     Dosage: SUBQ ON 11MAR13;2K47191-APR14?LAST INFUSION:06MAY13?08DEC13
     Route: 042
  2. SULFADINE [Concomitant]
     Active Substance: SULFAMETHAZINE
  3. PREDNISONE. [Concomitant]
     Active Substance: PREDNISONE
  4. ABATACEPT SUBQ INJECTION 125MG/ML [Suspect]
     Active Substance: ABATACEPT
     Route: 058

REACTIONS (5)
  - Headache [Unknown]
  - Influenza like illness [Unknown]
  - Vomiting [Unknown]
  - Malaise [Unknown]
  - Rheumatoid arthritis [Recovering/Resolving]
